FAERS Safety Report 6161134-7 (Version None)
Quarter: 2009Q2

REPORT INFORMATION
  Report Type: 
  Country: None (occurrence: None)
  Receive Date: 20090421
  Receipt Date: 20070323
  Transmission Date: 20091009
  Serious: Yes (Hospitalization, Other)
  Sender: FDA-Public Use
  Company Number: US-ASTRAZENECA-2006UW06982

PATIENT
  Age: 29 Year
  Sex: Female
  Weight: 80.5 kg

DRUGS (25)
  1. SEROQUEL [Suspect]
     Indication: DEPRESSION
     Dosage: 100-300 MG PO
     Route: 048
     Dates: start: 20030101, end: 20051201
  2. SEROQUEL [Suspect]
     Indication: ANXIETY
     Dosage: 100-300 MG PO
     Route: 048
     Dates: start: 20030101, end: 20051201
  3. SEROQUEL [Suspect]
     Indication: MAJOR DEPRESSION
     Dosage: 100-300 MG PO
     Route: 048
     Dates: start: 20030101, end: 20051201
  4. SEROQUEL [Suspect]
     Indication: GENERALISED ANXIETY DISORDER
     Dosage: 100-300 MG PO
     Route: 048
     Dates: start: 20030101, end: 20051201
  5. SEROQUEL [Suspect]
     Dosage: 25-700 MG
     Route: 048
     Dates: start: 20030101, end: 20051204
  6. SEROQUEL [Suspect]
     Dosage: 25-700 MG
     Route: 048
     Dates: start: 20030101, end: 20051204
  7. SEROQUEL [Suspect]
     Dosage: 25-700 MG
     Route: 048
     Dates: start: 20030101, end: 20051204
  8. SEROQUEL [Suspect]
     Dosage: 25-700 MG
     Route: 048
     Dates: start: 20030101, end: 20051204
  9. ZYPREXA [Concomitant]
  10. PROZAC [Concomitant]
  11. XANAX [Concomitant]
  12. HYDROXYZINE [Concomitant]
  13. CLONAZEPAM [Concomitant]
  14. PAROXETINE HCL [Concomitant]
  15. METRONIDAZOLE [Concomitant]
  16. ALBUTEROL [Concomitant]
  17. LORTAB [Concomitant]
  18. OXYCODONE HCL [Concomitant]
  19. SONATA [Concomitant]
  20. TRAMADOL HCL [Concomitant]
  21. ORTHO EVRA [Concomitant]
  22. RESTORIL [Concomitant]
  23. CHANTIX [Concomitant]
  24. CAFFEINE [Concomitant]
  25. DIHYDROCODEINE BITARTRATE INJ [Concomitant]

REACTIONS (28)
  - AGGRESSION [None]
  - ANAEMIA [None]
  - ANGER [None]
  - ARRHYTHMIA [None]
  - ASTHMA [None]
  - BIPOLAR DISORDER [None]
  - BRONCHITIS [None]
  - CHOLECYSTITIS CHRONIC [None]
  - CHOLELITHIASIS [None]
  - CHRONIC OBSTRUCTIVE PULMONARY DISEASE [None]
  - DRUG ABUSE [None]
  - DRUG EXPOSURE DURING PREGNANCY [None]
  - DYSTHYMIC DISORDER [None]
  - GENERALISED ANXIETY DISORDER [None]
  - HEADACHE [None]
  - HOMICIDAL IDEATION [None]
  - INSOMNIA [None]
  - MAJOR DEPRESSION [None]
  - OVERDOSE [None]
  - PANCREATITIS ACUTE [None]
  - PNEUMONIA [None]
  - PSYCHOTIC DISORDER [None]
  - SUICIDAL IDEATION [None]
  - SUICIDE ATTEMPT [None]
  - SUPRAVENTRICULAR TACHYCARDIA [None]
  - TOBACCO ABUSE [None]
  - TOOTHACHE [None]
  - UPPER RESPIRATORY TRACT INFECTION [None]
